FAERS Safety Report 9619740 (Version 1)
Quarter: 2013Q4

REPORT INFORMATION
  Report Type: Spontaneous
  Country: US (occurrence: US)
  Receive Date: 20131014
  Receipt Date: 20131014
  Transmission Date: 20140711
  Serious: Yes (Hospitalization)
  Sender: FDA-Public Use
  Company Number: US-GLAXOSMITHKLINE-A1044893A

PATIENT
  Age: 64 Year
  Sex: Female

DRUGS (1)
  1. LOVAZA [Suspect]
     Indication: BLOOD CHOLESTEROL
     Dosage: 4CAP PER DAY
     Route: 048
     Dates: start: 201304

REACTIONS (2)
  - Hospitalisation [Not Recovered/Not Resolved]
  - Dysgeusia [Unknown]
